FAERS Safety Report 10057236 (Version 1)
Quarter: 2014Q2

REPORT INFORMATION
  Report Type: Spontaneous
  Country: US (occurrence: US)
  Receive Date: 20140403
  Receipt Date: 20140403
  Transmission Date: 20141212
  Serious: Yes (Disabling)
  Sender: FDA-Public Use
  Company Number: US-ACTAVIS-2014-06118

PATIENT
  Age: 51 Year
  Sex: Female

DRUGS (1)
  1. CARBIDOPA/LEVODOPA (AELLC) [Suspect]
     Indication: PARKINSON^S DISEASE
     Dosage: 25/100 MG THREE TIMES DAILY
     Route: 048

REACTIONS (2)
  - Mydriasis [Recovered/Resolved]
  - Impaired driving ability [Recovered/Resolved]
